FAERS Safety Report 16927642 (Version 1)
Quarter: 2019Q4

REPORT INFORMATION
  Report Type: Spontaneous
  Country: BR (occurrence: BR)
  Receive Date: 20191016
  Receipt Date: 20191016
  Transmission Date: 20200122
  Serious: Yes (Other)
  Sender: FDA-Public Use
  Company Number: PHHY2019BR218761

PATIENT
  Age: 66 Year
  Sex: Male
  Weight: 78 kg

DRUGS (4)
  1. NILOTINIB [Suspect]
     Active Substance: NILOTINIB
     Indication: CHRONIC MYELOID LEUKAEMIA
     Dosage: 400 MG, Q12H
     Route: 048
     Dates: start: 201802
  2. NILOTINIB [Suspect]
     Active Substance: NILOTINIB
     Dosage: 400 MG, Q12H
     Route: 048
     Dates: start: 20180223, end: 20181122
  3. ALLOPURINOL. [Concomitant]
     Active Substance: ALLOPURINOL
     Indication: HYPERURICAEMIA
     Dosage: 300 MG, QD
     Route: 048
     Dates: start: 20011031
  4. NAPRIX [Concomitant]
     Active Substance: RAMIPRIL
     Indication: HYPERTENSION
     Dosage: 2.5 MG, QD
     Route: 048

REACTIONS (6)
  - Peripheral arterial occlusive disease [Not Recovered/Not Resolved]
  - Pancreatitis [Recovered/Resolved]
  - Pancreatitis acute [Unknown]
  - Intermittent claudication [Unknown]
  - Pancreatitis acute [Recovered/Resolved]
  - Peripheral artery stenosis [Unknown]

NARRATIVE: CASE EVENT DATE: 201809
